FAERS Safety Report 8738301 (Version 2)
Quarter: 2013Q4

REPORT INFORMATION
  Report Type: Report from Study
  Country: US (occurrence: US)
  Receive Date: 20120823
  Receipt Date: 20131031
  Transmission Date: 20140711
  Serious: Yes (Hospitalization)
  Sender: FDA-Public Use
  Company Number: US-009507513-1208USA002428

PATIENT
  Age: 58 Year
  Sex: Male
  Weight: 91.7 kg

DRUGS (3)
  1. VORINOSTAT [Suspect]
     Indication: DIFFUSE LARGE B-CELL LYMPHOMA
     Dosage: 400 MG, QD
     Route: 048
     Dates: start: 20120619, end: 20120626
  2. VORINOSTAT [Suspect]
     Dosage: 300 MG, QD
     Route: 048
     Dates: start: 20120709, end: 20120716
  3. ALISERTIB [Suspect]
     Indication: DIFFUSE LARGE B-CELL LYMPHOMA
     Dosage: 300 MG, BID
     Dates: start: 20120619, end: 20120625

REACTIONS (5)
  - Fatigue [Not Recovered/Not Resolved]
  - Abdominal distension [Not Recovered/Not Resolved]
  - Abdominal pain [Not Recovered/Not Resolved]
  - Nausea [Not Recovered/Not Resolved]
  - Vomiting [Not Recovered/Not Resolved]
